FAERS Safety Report 4967771-7 (Version None)
Quarter: 2006Q2

REPORT INFORMATION
  Report Type: 
  Country: None (occurrence: None)
  Receive Date: 20060410
  Receipt Date: 20060321
  Transmission Date: 20061013
  Serious: Yes (Hospitalization)
  Sender: FDA-Public Use
  Company Number: US-MERCK-0603USA03425

PATIENT
  Age: 41 Year
  Sex: Male
  Weight: 95 kg

DRUGS (5)
  1. INVANZ [Suspect]
     Indication: INFECTION
     Route: 042
     Dates: start: 20060309, end: 20060319
  2. DEPAKOTE [Concomitant]
     Indication: CONVULSION
     Route: 048
  3. DEPAKOTE [Concomitant]
     Route: 048
  4. DEPAKOTE [Concomitant]
     Route: 048
  5. LOPRESSOR [Concomitant]
     Indication: BLOOD PRESSURE
     Route: 048

REACTIONS (2)
  - CONVULSION [None]
  - DRUG LEVEL DECREASED [None]
